FAERS Safety Report 4798302-2 (Version None)
Quarter: 2005Q4

REPORT INFORMATION
  Report Type: 
  Country: None (occurrence: None)
  Receive Date: 20051014
  Receipt Date: 20051006
  Transmission Date: 20060501
  Serious: Yes (Hospitalization)
  Sender: FDA-Public Use
  Company Number: 2005UW15044

PATIENT
  Age: 36 Year
  Sex: Female

DRUGS (2)
  1. NEXIUM [Suspect]
     Route: 048
  2. LANTUS [Concomitant]

REACTIONS (2)
  - ANAPHYLACTIC REACTION [None]
  - HYPERGLYCAEMIA [None]
